FAERS Safety Report 9022446 (Version 7)
Quarter: 2014Q1

REPORT INFORMATION
  Report Type: Spontaneous
  Country: US (occurrence: US)
  Receive Date: 20130118
  Receipt Date: 20140205
  Transmission Date: 20141002
  Serious: Yes (Hospitalization, Other)
  Sender: FDA-Public Use
  Company Number: US-009507513-1301USA005051

PATIENT
  Sex: Female

DRUGS (3)
  1. FOSAMAX [Suspect]
     Indication: OSTEOPOROSIS
     Dosage: UNK
     Route: 048
     Dates: start: 1995, end: 2000
  2. BONIVA [Suspect]
     Indication: OSTEOPOROSIS
     Dosage: UNK, QW
     Route: 048
     Dates: start: 2000, end: 2010
  3. CALCIUM (UNSPECIFIED) [Concomitant]
     Dosage: 1500 MG, QD

REACTIONS (26)
  - Intramedullary rod insertion [Unknown]
  - Myocardial infarction [Unknown]
  - Myocardial infarction [Unknown]
  - International normalised ratio increased [Recovered/Resolved]
  - Vena cava filter insertion [Unknown]
  - Anaemia [Unknown]
  - Diverticulum [Unknown]
  - Large intestine polyp [Unknown]
  - Haemorrhoids [Unknown]
  - Deep vein thrombosis [Unknown]
  - Femur fracture [Unknown]
  - Foot fracture [Unknown]
  - Hypertension [Unknown]
  - Atrial fibrillation [Not Recovered/Not Resolved]
  - Upper limb fracture [Unknown]
  - Coronary artery disease [Unknown]
  - Morton^s neuralgia [Unknown]
  - Hypercholesterolaemia [Unknown]
  - Tenosynovitis [Unknown]
  - Synovitis [Unknown]
  - Onychomycosis [Unknown]
  - Osteopenia [Unknown]
  - Muscular weakness [Not Recovered/Not Resolved]
  - Gait disturbance [Not Recovered/Not Resolved]
  - Impaired healing [Unknown]
  - Back pain [Unknown]
